FAERS Safety Report 20403565 (Version 2)
Quarter: 2022Q1

REPORT INFORMATION
  Report Type: Other
  Country: US (occurrence: US)
  Receive Date: 20220131
  Receipt Date: 20220225
  Transmission Date: 20220423
  Serious: No
  Sender: FDA-Public Use
  Company Number: US-Covis Pharma GmbH-2022COV00278

PATIENT
  Age: 25 Year
  Sex: Female
  Weight: 59.020 kg

DRUGS (2)
  1. MAKENA [Suspect]
     Active Substance: HYDROXYPROGESTERONE CAPROATE
     Indication: Premature delivery
     Route: 058
     Dates: start: 20211026, end: 20211221
  2. IRON [Concomitant]
     Active Substance: IRON
     Indication: Anaemia
     Dates: start: 20210115

REACTIONS (3)
  - Stress [Recovered/Resolved]
  - Crying [Recovered/Resolved]
  - Product dose omission issue [Unknown]

NARRATIVE: CASE EVENT DATE: 20211109
